FAERS Safety Report 7001825-9 (Version None)
Quarter: 2010Q3

REPORT INFORMATION
  Report Type: 
  Country: None (occurrence: None)
  Receive Date: 20100920
  Receipt Date: 20100721
  Transmission Date: 20110219
  Serious: No
  Sender: FDA-Public Use
  Company Number: US-ASTRAZENECA-2009SE25948

PATIENT
  Age: 685 Month
  Sex: Female

DRUGS (1)
  1. SEROQUEL [Suspect]
     Route: 048

REACTIONS (8)
  - AGITATION [None]
  - APHAGIA [None]
  - DEPRESSION [None]
  - DRUG DOSE OMISSION [None]
  - INSOMNIA [None]
  - LETHARGY [None]
  - MANIA [None]
  - ROAD TRAFFIC ACCIDENT [None]
